FAERS Safety Report 18330499 (Version 2)
Quarter: 2020Q4

REPORT INFORMATION
  Report Type: Report from Study
  Country: MX (occurrence: MX)
  Receive Date: 20200930
  Receipt Date: 20201003
  Transmission Date: 20210113
  Serious: Yes (Death)
  Sender: FDA-Public Use
  Company Number: NVSC2020MX265053

PATIENT
  Age: 57 Year
  Sex: Male
  Weight: 68 kg

DRUGS (3)
  1. OMEPRAZOLE. [Concomitant]
     Active Substance: OMEPRAZOLE
     Indication: ULCER
     Dosage: 1 DF, Q24H
     Route: 048
     Dates: start: 202005
  2. ENTRESTO [Suspect]
     Active Substance: SACUBITRIL\VALSARTAN
     Indication: CARDIAC DISORDER
     Dosage: 50 MG, QD
     Route: 048
     Dates: start: 202003
  3. SPIRONOLACTONE. [Concomitant]
     Active Substance: SPIRONOLACTONE
     Indication: FLUID RETENTION
     Dosage: UNK, BID (1 TABLET IN THE MORNING AND 1.5 TABLET IN THE AFTERNOON)
     Route: 048
     Dates: start: 202003

REACTIONS (4)
  - Acute myocardial infarction [Fatal]
  - Product use in unapproved indication [Unknown]
  - Prescribed underdose [Unknown]
  - Cardiac failure [Fatal]

NARRATIVE: CASE EVENT DATE: 20200714
